FAERS Safety Report 9712225 (Version 1)
Quarter: 2013Q4

REPORT INFORMATION
  Report Type: Spontaneous
  Country: US (occurrence: US)
  Receive Date: 20131126
  Receipt Date: 20131126
  Transmission Date: 20140711
  Serious: No
  Sender: FDA-Public Use
  Company Number: US-BRISTOL-MYERS SQUIBB COMPANY-19149129

PATIENT
  Age: 74 Year
  Sex: Male
  Weight: 87.98 kg

DRUGS (6)
  1. BYDUREON [Suspect]
     Indication: TYPE 2 DIABETES MELLITUS
     Dates: start: 20130708
  2. GLUCOVANCE TABS [Concomitant]
     Dosage: 1DF:5/500MG 2 TABS
     Route: 048
  3. HUMALOG [Concomitant]
     Dosage: 1DF:SLIDING SCALE
     Route: 058
  4. LANTUS [Concomitant]
     Route: 058
  5. SIMVASTATIN [Concomitant]
     Route: 048
  6. RAMIPRIL [Concomitant]
     Route: 048

REACTIONS (2)
  - Injection site nodule [Not Recovered/Not Resolved]
  - Weight decreased [Unknown]
